FAERS Safety Report 10012139 (Version 2)
Quarter: 2014Q2

REPORT INFORMATION
  Report Type: Spontaneous
  Country: US (occurrence: US)
  Receive Date: 20140314
  Receipt Date: 20140414
  Transmission Date: 20141212
  Serious: Yes (Hospitalization)
  Sender: FDA-Public Use
  Company Number: US-GLAXOSMITHKLINE-A1064115A

PATIENT
  Age: 40 Year
  Sex: Female
  Weight: 55.9 kg

DRUGS (6)
  1. ARIXTRA [Suspect]
     Indication: THROMBOCYTOSIS
     Dosage: 7.5MG PER DAY
     Route: 058
     Dates: start: 20130829
  2. FENTANYL [Concomitant]
  3. MORPHINE SULFATE [Concomitant]
  4. LIDOCAINE VISCOUS [Concomitant]
  5. ZOFRAN [Concomitant]
  6. ZANTAC [Concomitant]

REACTIONS (7)
  - Pneumonia [Recovered/Resolved]
  - Dyspnoea [Recovered/Resolved]
  - Chest pain [Recovered/Resolved]
  - Dehydration [Recovered/Resolved]
  - Nausea [Recovered/Resolved]
  - Vomiting [Recovered/Resolved]
  - Investigation [Recovered/Resolved]
